FAERS Safety Report 7432155-9 (Version None)
Quarter: 2011Q2

REPORT INFORMATION
  Report Type: 
  Country: None (occurrence: None)
  Receive Date: 20110422
  Receipt Date: 20110421
  Transmission Date: 20111010
  Serious: Yes (Hospitalization)
  Sender: FDA-Public Use
  Company Number: IT-SANOFI-AVENTIS-2011SA024563

PATIENT
  Sex: Male

DRUGS (3)
  1. ALL OTHER THERAPEUTIC PRODUCTS [Concomitant]
  2. MULTAQ [Suspect]
     Route: 048
     Dates: start: 20101101, end: 20101201
  3. ANTIBIOTICS [Concomitant]

REACTIONS (1)
  - LIVER DISORDER [None]
